FAERS Safety Report 7627120-2 (Version None)
Quarter: 2011Q3

REPORT INFORMATION
  Report Type: 
  Country: None (occurrence: None)
  Receive Date: 20110721
  Receipt Date: 20110715
  Transmission Date: 20111222
  Serious: Yes (Other)
  Sender: FDA-Public Use
  Company Number: US-GILEAD-2011-0039889

PATIENT
  Sex: Female
  Weight: 59.474 kg

DRUGS (5)
  1. FUROSEMIDE [Concomitant]
  2. LETAIRIS [Suspect]
     Dates: start: 20101001
  3. KLOR-CON [Concomitant]
  4. LETAIRIS [Suspect]
     Indication: PULMONARY HYPERTENSION
     Dates: start: 20100101
  5. WARFARIN SODIUM [Concomitant]

REACTIONS (1)
  - ABORTION INDUCED [None]
